FAERS Safety Report 10366647 (Version 3)
Quarter: 2015Q3

REPORT INFORMATION
  Report Type: Report from Study
  Country: JP (occurrence: JP)
  Receive Date: 20140806
  Receipt Date: 20150902
  Transmission Date: 20151125
  Serious: Yes (Hospitalization)
  Sender: FDA-Public Use
  Company Number: JP-009507513-1307JPN004022

PATIENT
  Age: 72 Year
  Sex: Male

DRUGS (22)
  1. VORINOSTAT-MYCOSIS FUNGOIDES [Suspect]
     Active Substance: VORINOSTAT
     Dosage: 300 MG, QD,  STRENGTH: 100MG
     Route: 048
     Dates: start: 20120125, end: 20120301
  2. PREDNISOLONE. [Suspect]
     Active Substance: PREDNISOLONE
     Dosage: 5 MG, QD
     Route: 048
     Dates: start: 20100715
  3. PREDNISOLONE. [Suspect]
     Active Substance: PREDNISOLONE
     Dosage: 5 MG, QD
     Route: 048
     Dates: start: 20121004, end: 20121115
  4. PREDNISOLONE. [Suspect]
     Active Substance: PREDNISOLONE
     Indication: MYCOSIS FUNGOIDES
     Dosage: 2.5 MG, QD
     Route: 048
     Dates: start: 20120215, end: 20121004
  5. TALION (BEPOTASTINE BESYLATE) [Concomitant]
     Active Substance: BEPOTASTINE
     Indication: MYCOSIS FUNGOIDES
     Dosage: 20 MG, BID
     Route: 048
     Dates: start: 20110421, end: 20120214
  6. MYSER (DIFLUPREDNATE) [Concomitant]
     Active Substance: DIFLUPREDNATE
     Indication: MYCOSIS FUNGOIDES
     Dosage: DAILY DOSAGE UNKNOWN, BODY
     Route: 061
     Dates: start: 20100610
  7. VORINOSTAT-MYCOSIS FUNGOIDES [Suspect]
     Active Substance: VORINOSTAT
     Dosage: 5 CONSECUTIVE DAYS TREATMENT 2 DAYS OFF PER WEEK
     Route: 048
     Dates: start: 20120322, end: 20120507
  8. VORINOSTAT-MYCOSIS FUNGOIDES [Suspect]
     Active Substance: VORINOSTAT
     Dosage: 6 CONSECUTIVE DAYS TREATMENT AND 1 DAY OFF PER WEEK
     Route: 048
     Dates: start: 20120508
  9. JANUVIA [Concomitant]
     Active Substance: SITAGLIPTIN PHOSPHATE
     Indication: DIABETES MELLITUS
     Dosage: 50 MG, QD
     Route: 048
     Dates: start: 20111228, end: 20120405
  10. LAMISIL (TERBINAFINE HYDROCHLORIDE) [Concomitant]
     Indication: TINEA PEDIS
     Dosage: 125 MG, QD
     Route: 048
     Dates: end: 20120124
  11. VORINOSTAT-MYCOSIS FUNGOIDES [Suspect]
     Active Substance: VORINOSTAT
     Indication: MYCOSIS FUNGOIDES
     Dosage: 400 MG, QD, STRENGTH: 100MG
     Route: 048
     Dates: start: 20120110, end: 20120120
  12. LIVALO [Concomitant]
     Active Substance: PITAVASTATIN CALCIUM
     Indication: HYPERCHOLESTEROLAEMIA
     Dosage: 2 MG, QD
     Route: 048
     Dates: end: 20120328
  13. BONALFA [Concomitant]
     Indication: MYCOSIS FUNGOIDES
     Dosage: DAILY DOSAGE UNKNOWN, BODY
     Route: 061
     Dates: end: 20120109
  14. LOCOID [Concomitant]
     Active Substance: HYDROCORTISONE BUTYRATE
     Indication: MYCOSIS FUNGOIDES
     Dosage: DAILY DOSAGE UNKNOWN, FACE
     Route: 061
  15. BIOFERMIN R [Concomitant]
     Active Substance: BACILLUS SUBTILIS\LACTOBACILLUS ACIDOPHILUS\STREPTOCOCCUS FAECAIS
     Indication: GASTRIC ULCER
     Dosage: 1 DF, TID
     Route: 048
     Dates: end: 20120223
  16. TIGASON [Concomitant]
     Active Substance: ETRETINATE
     Indication: MYCOSIS FUNGOIDES
     Dosage: 10 MG, QW
     Route: 048
     Dates: start: 20120116, end: 20120221
  17. PREDNISOLONE. [Suspect]
     Active Substance: PREDNISOLONE
     Dosage: 4 MG, QD
     Dates: start: 20121115, end: 20121227
  18. PREDNISOLONE. [Suspect]
     Active Substance: PREDNISOLONE
     Dosage: 3 MG, QD
     Route: 048
     Dates: start: 20121227
  19. VORINOSTAT-MYCOSIS FUNGOIDES [Suspect]
     Active Substance: VORINOSTAT
     Dosage: 300 MG, QD,  STRENGTH: 100MG
     Route: 048
     Dates: start: 20120307, end: 20120321
  20. METHOTREXATE [Concomitant]
     Active Substance: METHOTREXATE
     Indication: MYCOSIS FUNGOIDES
     Dosage: 2.5 MG X 2/DAY/WEEK
     Route: 048
     Dates: start: 20110321, end: 20120122
  21. MUCOSTA [Concomitant]
     Active Substance: REBAMIPIDE
     Indication: GASTRIC ULCER
     Dosage: `100 MG, TID
     Route: 048
     Dates: end: 20120507
  22. MYSLEE [Concomitant]
     Active Substance: ZOLPIDEM TARTRATE
     Indication: INSOMNIA
     Dosage: 5 MG, QD
     Route: 048
     Dates: end: 20120328

REACTIONS (6)
  - Platelet count decreased [Recovering/Resolving]
  - Platelet count decreased [Recovering/Resolving]
  - Eosinophilic cellulitis [Recovering/Resolving]
  - Platelet count decreased [Recovering/Resolving]
  - Herpes zoster [Recovering/Resolving]
  - Dysgeusia [Not Recovered/Not Resolved]

NARRATIVE: CASE EVENT DATE: 20120120
